FAERS Safety Report 5084218-3 (Version None)
Quarter: 2006Q3

REPORT INFORMATION
  Report Type: 
  Country: None (occurrence: None)
  Receive Date: 20060821
  Receipt Date: 20051227
  Transmission Date: 20061208
  Serious: No
  Sender: FDA-Public Use
  Company Number: US-BRISTOL-MYERS SQUIBB COMPANY-13229463

PATIENT
  Sex: Male

DRUGS (10)
  1. TEQUIN [Suspect]
     Indication: PNEUMONIA
     Dosage: RECEIVED ONE DOSE 400 MG IV ON 18-DEC-2005
     Route: 048
     Dates: start: 20051219
  2. TEQUIN [Suspect]
     Indication: PNEUMONIA
     Route: 042
     Dates: start: 20051218, end: 20051218
  3. ATENOLOL [Concomitant]
  4. ZOCOR [Concomitant]
  5. ADVAIR DISKUS 100/50 [Concomitant]
  6. ALBUTEROL [Concomitant]
  7. FELODIPINE [Concomitant]
  8. EYE DROPS [Concomitant]
  9. TRIAMTERENE [Concomitant]
  10. QUININE SULFATE [Concomitant]

REACTIONS (4)
  - ANOREXIA [None]
  - ASTHENIA [None]
  - DRY MOUTH [None]
  - WEIGHT DECREASED [None]
